FAERS Safety Report 4835052-8 (Version None)
Quarter: 2005Q4

REPORT INFORMATION
  Report Type: 
  Country: None (occurrence: None)
  Receive Date: 20051121
  Receipt Date: 20051103
  Transmission Date: 20060501
  Serious: Yes (Other)
  Sender: FDA-Public Use
  Company Number: US016318

PATIENT
  Age: 14 Month
  Sex: Female

DRUGS (2)
  1. ACTIQ [Suspect]
     Dosage: 1200 UG ONCE BUCCAL
     Route: 002
     Dates: start: 20051103, end: 20051103
  2. ZANTAC [Concomitant]

REACTIONS (4)
  - ACCIDENTAL DRUG INTAKE BY CHILD [None]
  - MIOSIS [None]
  - OVERDOSE [None]
  - SOMNOLENCE [None]
